FAERS Safety Report 10940136 (Version 2)
Quarter: 2015Q2

REPORT INFORMATION
  Report Type: Spontaneous
  Country: US (occurrence: US)
  Receive Date: 20150322
  Receipt Date: 20150525
  Transmission Date: 20150821
  Serious: Yes (Other)
  Sender: FDA-Public Use
  Company Number: US-JNJFOC-20140204086

PATIENT
  Sex: Female
  Weight: 77.11 kg

DRUGS (2)
  1. NUCYNTA ER [Suspect]
     Active Substance: TAPENTADOL HYDROCHLORIDE
     Indication: PAIN
     Dosage: ONCE DAILY
     Route: 048
     Dates: start: 2013
  2. NUCYNTA ER [Suspect]
     Active Substance: TAPENTADOL HYDROCHLORIDE
     Indication: PAIN
     Dosage: 3 TIMES A DAY
     Route: 048
     Dates: start: 2013, end: 2013

REACTIONS (4)
  - Inappropriate schedule of drug administration [Unknown]
  - Drug prescribing error [Unknown]
  - Drug dose omission [Unknown]
  - Dependence [Unknown]

NARRATIVE: CASE EVENT DATE: 2013
